FAERS Safety Report 14858488 (Version 1)
Quarter: 2018Q2

REPORT INFORMATION
  Report Type: Spontaneous
  Country: FR (occurrence: FR)
  Receive Date: 20180508
  Receipt Date: 20180508
  Transmission Date: 20180711
  Serious: Yes (Other)
  Sender: FDA-Public Use
  Company Number: FR-MERCK KGAA-2047364

PATIENT
  Age: 53 Year
  Sex: Female

DRUGS (1)
  1. NOVOTHYROX [Suspect]
     Active Substance: LEVOTHYROXINE SODIUM
     Indication: HYPOTHYROIDISM
     Dates: end: 2017

REACTIONS (38)
  - Blood thyroid stimulating hormone increased [None]
  - Weight increased [None]
  - Abdominal distension [None]
  - Dyspnoea [None]
  - Hot flush [None]
  - Irritability [None]
  - Nervous system disorder [None]
  - Depression [None]
  - Thyroxine free decreased [None]
  - Red blood cell count decreased [None]
  - Serum ferritin decreased [None]
  - Thyroglobulin increased [None]
  - Anger [None]
  - Memory impairment [None]
  - Mood swings [None]
  - Haematocrit decreased [None]
  - Anti-thyroid antibody positive [None]
  - Gastrointestinal motility disorder [None]
  - Menorrhagia [None]
  - Alopecia [None]
  - Dry eye [None]
  - Movement disorder [None]
  - Aggression [None]
  - Loss of libido [None]
  - Negative thoughts [None]
  - Social avoidant behaviour [None]
  - Headache [None]
  - Fatigue [None]
  - Eye disorder [None]
  - Arthralgia [Recovering/Resolving]
  - Joint swelling [None]
  - Loss of personal independence in daily activities [None]
  - Disturbance in attention [None]
  - Haemoglobin decreased [None]
  - Flatulence [None]
  - Insomnia [None]
  - Constipation [None]
  - Tri-iodothyronine free decreased [None]

NARRATIVE: CASE EVENT DATE: 20170523
